FAERS Safety Report 8883878 (Version 1)
Quarter: 2012Q4

REPORT INFORMATION
  Report Type: 
  Country: US (occurrence: US)
  Receive Date: 20121102
  Receipt Date: 20121102
  Transmission Date: 20130627
  Serious: Yes (Other)
  Sender: FDA-Public Use
  Company Number: US-PFIZER INC-2012272555

PATIENT
  Age: 51 Year
  Sex: Female
  Weight: 117 kg

DRUGS (3)
  1. LYRICA [Suspect]
     Indication: FIBROMYALGIA
     Dosage: 75 mg, daily
     Dates: start: 201210
  2. LYRICA [Suspect]
     Dosage: 75 mg, 2x/day
     Dates: start: 201210
  3. LISINOPRIL [Concomitant]
     Indication: BLOOD PRESSURE HIGH
     Dosage: 10 mg, daily

REACTIONS (3)
  - Gout [Unknown]
  - Arthralgia [Recovering/Resolving]
  - Drug effect decreased [Unknown]
